FAERS Safety Report 13801344 (Version 1)
Quarter: 2017Q3

REPORT INFORMATION
  Report Type: Spontaneous
  Country: US (occurrence: US)
  Receive Date: 20170727
  Receipt Date: 20170727
  Transmission Date: 20171127
  Serious: No
  Sender: FDA-Public Use
  Company Number: US-BAUSCH-BL-2016-020925

PATIENT
  Sex: Male

DRUGS (1)
  1. ZEGERID [Suspect]
     Active Substance: OMEPRAZOLE\SODIUM BICARBONATE
     Indication: DYSPEPSIA
     Route: 065

REACTIONS (4)
  - Medical device discomfort [Unknown]
  - Retching [Unknown]
  - Drug ineffective [Unknown]
  - Product use complaint [Unknown]
